FAERS Safety Report 15374971 (Version 1)
Quarter: 2018Q3

REPORT INFORMATION
  Report Type: Spontaneous
  Country: FR (occurrence: FR)
  Receive Date: 20180912
  Receipt Date: 20180912
  Transmission Date: 20181010
  Serious: Yes (Life-Threatening)
  Sender: FDA-Public Use
  Company Number: FR-SANOFI-AVENTIS-2012SA060364

PATIENT
  Age: 74 Year
  Sex: Female

DRUGS (5)
  1. FLUOROURACILE WINTHROP [Suspect]
     Active Substance: FLUOROURACIL
     Indication: COLORECTAL CANCER
     Dosage: UNK UNK,UNK
     Route: 042
     Dates: start: 20120810, end: 20120812
  2. FOLINATE DE CALCIUM ZENTIVA [Suspect]
     Active Substance: LEUCOVORIN CALCIUM
     Indication: COLORECTAL CANCER
     Dosage: 612 MG,QCY
     Route: 042
     Dates: start: 20120810
  3. METHYLPREDNISOLONE SODIUM SUCCINATE. [Suspect]
     Active Substance: METHYLPREDNISOLONE SODIUM SUCCINATE
     Indication: COLORECTAL CANCER
     Dosage: 120 MG,QCY
     Route: 042
     Dates: start: 20120810
  4. ONDANSETRON [Suspect]
     Active Substance: ONDANSETRON
     Indication: COLORECTAL CANCER
     Dosage: 8 MG,UNK
     Route: 042
     Dates: start: 20120810
  5. ELOXATIN [Suspect]
     Active Substance: OXALIPLATIN
     Indication: COLORECTAL CANCER
     Dosage: 50 MG,UNK
     Route: 042
     Dates: start: 20120810, end: 20120810

REACTIONS (5)
  - Hypersensitivity [Recovered/Resolved]
  - Vomiting [Recovered/Resolved]
  - Chest discomfort [Recovered/Resolved]
  - Hypertension [Recovered/Resolved]
  - Urticaria [Recovered/Resolved]

NARRATIVE: CASE EVENT DATE: 20120810
